FAERS Safety Report 20195680 (Version 1)
Quarter: 2021Q4

REPORT INFORMATION
  Report Type: Spontaneous
  Country: RS (occurrence: RS)
  Receive Date: 20211216
  Receipt Date: 20211216
  Transmission Date: 20220303
  Serious: Yes (Life-Threatening, Other)
  Sender: FDA-Public Use
  Company Number: RS-JNJFOC-20211216420

PATIENT

DRUGS (3)
  1. STELARA [Suspect]
     Active Substance: USTEKINUMAB
     Indication: Product used for unknown indication
     Dosage: (45 OR 90 MG)
     Route: 058
  2. STELARA [Suspect]
     Active Substance: USTEKINUMAB
  3. PREDNISOLONE [Concomitant]
     Active Substance: PREDNISOLONE

REACTIONS (10)
  - COVID-19 [Unknown]
  - Pancytopenia [Unknown]
  - Urosepsis [Unknown]
  - Nasopharyngitis [Unknown]
  - Herpes virus infection [Unknown]
  - Urinary tract infection [Unknown]
  - Inflammatory marker increased [Unknown]
  - Tonsillitis [Unknown]
  - Transaminases increased [Unknown]
  - Candida infection [Unknown]
